FAERS Safety Report 9097699 (Version 26)
Quarter: 2019Q3

REPORT INFORMATION
  Report Type: Report from Study
  Country: CA (occurrence: CA)
  Receive Date: 20130212
  Receipt Date: 20190911
  Transmission Date: 20191005
  Serious: Yes (Other)
  Sender: FDA-Public Use
  Company Number: CA-ROCHE-1190048

PATIENT
  Age: 74 Year
  Sex: Female
  Weight: 79.4 kg

DRUGS (24)
  1. CRESTOR [Concomitant]
     Active Substance: ROSUVASTATIN CALCIUM
  2. DIPHENHYDRAMINE HCL [Concomitant]
     Active Substance: DIPHENHYDRAMINE HYDROCHLORIDE
     Indication: PREMEDICATION
     Route: 048
     Dates: start: 20130110
  3. VOLTAREN [DICLOFENAC] [Concomitant]
     Active Substance: DICLOFENAC SODIUM
  4. GABAPENTIN. [Concomitant]
     Active Substance: GABAPENTIN
     Route: 065
     Dates: end: 2016
  5. PENICILLAMINE [Concomitant]
     Active Substance: PENICILLAMINE
     Route: 065
     Dates: start: 2016
  6. SALBUTAMOL [Concomitant]
     Active Substance: ALBUTEROL
  7. RITUXAN [Suspect]
     Active Substance: RITUXIMAB
     Route: 042
     Dates: start: 20141120
  8. METHYLPREDNISOLONE. [Concomitant]
     Active Substance: METHYLPREDNISOLONE
     Indication: PREMEDICATION
     Route: 042
     Dates: start: 20130110
  9. ATROVENT [Concomitant]
     Active Substance: IPRATROPIUM BROMIDE
     Route: 065
  10. ELTROXIN [Concomitant]
     Active Substance: LEVOTHYROXINE
  11. SINGULAIR [Concomitant]
     Active Substance: MONTELUKAST SODIUM
  12. ACETAMINOPHEN. [Concomitant]
     Active Substance: ACETAMINOPHEN
     Indication: PREMEDICATION
     Route: 048
     Dates: start: 20130110
  13. FOLIC ACID. [Concomitant]
     Active Substance: FOLIC ACID
  14. RITUXAN [Suspect]
     Active Substance: RITUXIMAB
     Route: 042
     Dates: start: 20150521
  15. ZOLOFT [Concomitant]
     Active Substance: SERTRALINE HYDROCHLORIDE
  16. JANUVIA [Concomitant]
     Active Substance: SITAGLIPTIN PHOSPHATE
  17. RITUXAN [Suspect]
     Active Substance: RITUXIMAB
     Indication: RHEUMATOID ARTHRITIS
     Dosage: LAST DOSE OF THE INFUSION WAS ON 31/OCT/2013.?LAST DOSE OF RITUXIMAB INFUSION: 21/MAY/2015.
     Route: 042
     Dates: start: 20130110
  18. PARIET [Concomitant]
     Active Substance: RABEPRAZOLE SODIUM
  19. PREDNISONE. [Concomitant]
     Active Substance: PREDNISONE
  20. METHYLPREDNISOLONE. [Concomitant]
     Active Substance: METHYLPREDNISOLONE
     Route: 042
     Dates: start: 20131031
  21. FYCOMPA [Concomitant]
     Active Substance: PERAMPANEL
  22. PERINDOPRIL [Concomitant]
     Active Substance: PERINDOPRIL
  23. SYNTHROID [Concomitant]
     Active Substance: LEVOTHYROXINE SODIUM
  24. CELEBREX [Concomitant]
     Active Substance: CELECOXIB

REACTIONS (21)
  - Foot fracture [Not Recovered/Not Resolved]
  - Tooth disorder [Unknown]
  - Rheumatoid arthritis [Unknown]
  - Joint swelling [Unknown]
  - Face injury [Unknown]
  - Skin laceration [Recovered/Resolved]
  - Pain [Not Recovered/Not Resolved]
  - Blood pressure systolic increased [Unknown]
  - Blood pressure diastolic decreased [Unknown]
  - Retinal detachment [Not Recovered/Not Resolved]
  - Arthralgia [Not Recovered/Not Resolved]
  - Fall [Unknown]
  - Head injury [Unknown]
  - Oxygen saturation decreased [Unknown]
  - Contusion [Unknown]
  - Blood pressure systolic abnormal [Unknown]
  - Hypotension [Unknown]
  - Infusion related reaction [Unknown]
  - Rash [Unknown]
  - Blood pressure fluctuation [Unknown]
  - Respiratory rate increased [Unknown]

NARRATIVE: CASE EVENT DATE: 20130204
